FAERS Safety Report 20977353 (Version 1)
Quarter: 2022Q2

REPORT INFORMATION
  Report Type: Spontaneous
  Country: US (occurrence: US)
  Receive Date: 20220617
  Receipt Date: 20220617
  Transmission Date: 20220720
  Serious: Yes (Other)
  Sender: FDA-Public Use
  Company Number: US-009507513-2206USA003930

PATIENT
  Sex: Female

DRUGS (2)
  1. DIFICID [Suspect]
     Active Substance: FIDAXOMICIN
     Indication: Clostridium difficile colitis
     Dosage: TWO TABLETS DAILY (CLARIFIED TO BE TAKEN AS ONE TABLET TWICE DAILY)  FOR THE FIRST 5 DAYS
     Route: 048
  2. DIFICID [Suspect]
     Active Substance: FIDAXOMICIN
     Dosage: 1 TABLET, QOD, FOR THE NEXT 20 DAYS
     Route: 048

REACTIONS (2)
  - Clostridium difficile infection [Unknown]
  - Product prescribing error [Unknown]
